FAERS Safety Report 14315794 (Version 1)
Quarter: 2017Q4

REPORT INFORMATION
  Report Type: Spontaneous
  Country: US (occurrence: US)
  Receive Date: 20171221
  Receipt Date: 20171221
  Transmission Date: 20180321
  Serious: No
  Sender: FDA-Public Use
  Company Number: US-AMGEN-USASP2017188080

PATIENT
  Sex: Female
  Weight: 68.27 kg

DRUGS (1)
  1. ENBREL [Suspect]
     Active Substance: ETANERCEPT
     Indication: RHEUMATOID ARTHRITIS
     Dosage: 50 MG, QWK
     Route: 058
     Dates: start: 2009

REACTIONS (6)
  - Back injury [Unknown]
  - Herpes zoster [Unknown]
  - Fall [Unknown]
  - Nasopharyngitis [Unknown]
  - Injection site bruising [Unknown]
  - Headache [Unknown]

NARRATIVE: CASE EVENT DATE: 2016
